FAERS Safety Report 8053642-9 (Version None)
Quarter: 2012Q1

REPORT INFORMATION
  Report Type: 
  Country: None (occurrence: None)
  Receive Date: 20120118
  Receipt Date: 20120116
  Transmission Date: 20120608
  Serious: No
  Sender: FDA-Public Use
  Company Number: US-PFIZER INC-2012012320

PATIENT
  Sex: Male
  Weight: 87.982 kg

DRUGS (14)
  1. ASPIRIN [Concomitant]
     Dosage: 81 MG, UNK
  2. VITAMIN D [Concomitant]
     Dosage: 1000 MG, UNK
  3. BYSTOLIC [Concomitant]
     Indication: HYPERTENSION
     Dosage: 10 MG, UNK
  4. KLONOPIN [Concomitant]
     Indication: NERVOUS SYSTEM DISORDER
     Dosage: 0.5 MG, AS NEEDED
  5. LIPITOR [Suspect]
     Indication: BLOOD CHOLESTEROL INCREASED
     Dosage: 80 MG, 1X/DAY
     Route: 048
     Dates: start: 20090101
  6. LASIX [Concomitant]
     Dosage: 20 MG, 1X/DAY
  7. GLIMEPIRIDE [Concomitant]
     Indication: DIABETES MELLITUS
     Dosage: 1 MG, UNK
  8. LIPITOR [Suspect]
     Dosage: 80 MG, ALTERNATE DAY
     Route: 048
  9. RANEXA [Concomitant]
     Dosage: 500 MG, 2X/DAY
  10. MULTI-VITAMINS [Concomitant]
     Dosage: UNK
  11. LIPITOR [Suspect]
     Dosage: UNK
     Route: 048
  12. JANUVIA [Concomitant]
     Indication: DIABETES MELLITUS
     Dosage: 25 MG, UNK
  13. DIOVAN [Concomitant]
     Indication: HYPERTENSION
     Dosage: 160 MG, UNK
  14. PLAVIX [Concomitant]
     Dosage: 75 MG, UNK

REACTIONS (3)
  - BLOOD CHOLESTEROL DECREASED [None]
  - ABDOMINAL PAIN UPPER [None]
  - HYPOKINESIA [None]
